FAERS Safety Report 16067382 (Version 1)
Quarter: 2019Q1

REPORT INFORMATION
  Report Type: Spontaneous
  Country: ES (occurrence: ES)
  Receive Date: 20190313
  Receipt Date: 20190313
  Transmission Date: 20190418
  Serious: Yes (Other)
  Sender: FDA-Public Use
  Company Number: ES-DSJP-DSJ-2019-108290

PATIENT

DRUGS (3)
  1. CONDROSULF [Concomitant]
     Active Substance: SODIUM CHONDROITIN SULFATE
     Dosage: UNK
     Route: 065
     Dates: start: 20181115, end: 20181215
  2. OLMESARTAN MEDOXOMIL. [Suspect]
     Active Substance: OLMESARTAN MEDOXOMIL
     Indication: HYPERTENSION
     Dosage: 20 MG, QD
     Route: 048
     Dates: start: 2008
  3. LEVOFLOXACIN. [Suspect]
     Active Substance: LEVOFLOXACIN
     Indication: BACTERIAL PROSTATITIS
     Dosage: 500 MG, QD
     Route: 048
     Dates: start: 20180906, end: 20181006

REACTIONS (7)
  - Keratitis [Recovered/Resolved]
  - Malaise [Not Recovered/Not Resolved]
  - Thyroiditis chronic [Not Recovered/Not Resolved]
  - Gait disturbance [Recovered/Resolved]
  - Dry throat [Not Recovered/Not Resolved]
  - Tendonitis [Not Recovered/Not Resolved]
  - Pyrexia [Not Recovered/Not Resolved]

NARRATIVE: CASE EVENT DATE: 20181110
